FAERS Safety Report 8967317 (Version 1)
Quarter: 2012Q4

REPORT INFORMATION
  Report Type: 
  Country: GB (occurrence: GB)
  Receive Date: 20121217
  Receipt Date: 20121217
  Transmission Date: 20130627
  Serious: Yes (Other)
  Sender: FDA-Public Use
  Company Number: GB-ELI_LILLY_AND_COMPANY-GB201212002968

PATIENT
  Age: 48 Year
  Sex: Female
  Weight: 84 kg

DRUGS (4)
  1. HUMULIN 30% REGULAR, 70% NPH [Suspect]
     Indication: DIABETES MELLITUS
     Dosage: 87 IU, qd
     Route: 058
     Dates: start: 20121031
  2. METFORMIN [Concomitant]
     Indication: DIABETES MELLITUS
     Dosage: 1 g, bid
     Route: 048
  3. PERINDOPRIL [Concomitant]
     Indication: HYPERTENSION
     Dosage: 8 mg, qd
     Route: 048
  4. SIMVASTATIN [Concomitant]
     Indication: BLOOD CHOLESTEROL INCREASED
     Dosage: 20 mg, qd
     Route: 048

REACTIONS (3)
  - Pruritus generalised [Not Recovered/Not Resolved]
  - Pain [Not Recovered/Not Resolved]
  - Rash generalised [Not Recovered/Not Resolved]
